FAERS Safety Report 5869840-6 (Version None)
Quarter: 2008Q3

REPORT INFORMATION
  Report Type: 
  Country: None (occurrence: None)
  Receive Date: 20080904
  Receipt Date: 20080821
  Transmission Date: 20090109
  Serious: Yes (Hospitalization)
  Sender: FDA-Public Use
  Company Number: JP-PFIZER INC-2008067194

PATIENT
  Sex: Male

DRUGS (13)
  1. MIGLITOL [Suspect]
     Indication: TYPE 2 DIABETES MELLITUS
     Dosage: DAILY DOSE:150MG
     Route: 048
     Dates: start: 20070309, end: 20070410
  2. DAONIL [Concomitant]
     Indication: TYPE 2 DIABETES MELLITUS
     Route: 048
  3. METFORMIN HCL [Concomitant]
     Indication: TYPE 2 DIABETES MELLITUS
     Route: 048
  4. URSO 250 [Concomitant]
     Route: 048
     Dates: start: 19970726
  5. VASOLAN [Concomitant]
     Route: 048
     Dates: start: 20020410
  6. LANSOPRAZOLE [Concomitant]
     Route: 048
     Dates: start: 20030327
  7. GLYCYRON [Concomitant]
     Dosage: TEXT:DOSE: 6 DF
     Route: 048
     Dates: start: 20050114
  8. ARTIST [Concomitant]
     Route: 048
  9. ASPIRIN [Concomitant]
     Route: 048
     Dates: start: 20060407
  10. PANALDINE [Concomitant]
     Route: 048
     Dates: start: 20060407
  11. ADALAT [Concomitant]
     Route: 048
     Dates: start: 20070105
  12. SODIUM ALGINATE [Concomitant]
     Route: 048
     Dates: start: 20070105
  13. LASIX [Concomitant]
     Route: 048
     Dates: start: 20070105

REACTIONS (1)
  - INTESTINAL ISCHAEMIA [None]
